FAERS Safety Report 21075424 (Version 2)
Quarter: 2022Q3

REPORT INFORMATION
  Report Type: Other
  Country: SE (occurrence: None)
  Receive Date: 20220713
  Receipt Date: 20220720
  Transmission Date: 20221027
  Serious: Yes (Other)
  Sender: FDA-Public Use
  Company Number: SE-ROCHE-3134530

PATIENT
  Sex: Female

DRUGS (1)
  1. RITUXIMAB [Suspect]
     Active Substance: RITUXIMAB
     Indication: Multiple sclerosis
     Route: 065

REACTIONS (5)
  - Empyema [Unknown]
  - Abdominal abscess [Unknown]
  - Ureaplasma infection [Unknown]
  - Bartholinitis [Unknown]
  - Urinary tract disorder [Unknown]
